FAERS Safety Report 11861587 (Version 2)
Quarter: 2016Q1

REPORT INFORMATION
  Report Type: Spontaneous
  Country: US (occurrence: US)
  Receive Date: 20151222
  Receipt Date: 20160317
  Transmission Date: 20160526
  Serious: Yes (Other)
  Sender: FDA-Public Use
  Company Number: US-PFIZER INC-2015448729

PATIENT
  Age: 55 Year
  Sex: Female
  Weight: 61.22 kg

DRUGS (4)
  1. SKELAXIN [Suspect]
     Active Substance: METAXALONE
     Indication: FACIAL SPASM
     Dosage: 800 MG, 4X/DAY
     Route: 048
  2. CELEBREX [Suspect]
     Active Substance: CELECOXIB
     Indication: NERVE INJURY
     Dosage: 200 MG, 3X/DAY
  3. SOMA [Suspect]
     Active Substance: CARISOPRODOL
     Indication: JAW DISORDER
     Dosage: UNK
  4. CELEBREX [Suspect]
     Active Substance: CELECOXIB
     Indication: MUSCLE SPASMS

REACTIONS (11)
  - Product use issue [Unknown]
  - Nerve injury [Unknown]
  - Fatigue [Unknown]
  - Headache [Unknown]
  - Muscle spasms [Unknown]
  - Rib fracture [Unknown]
  - Pain in extremity [Unknown]
  - Malaise [Unknown]
  - Drug ineffective [Unknown]
  - Back disorder [Unknown]
  - Trigeminal neuralgia [Unknown]
